FAERS Safety Report 8207487-7 (Version None)
Quarter: 2012Q1

REPORT INFORMATION
  Report Type: 
  Country: None (occurrence: None)
  Receive Date: 20120313
  Receipt Date: 20120313
  Transmission Date: 20120608
  Serious: Yes (Other)
  Sender: FDA-Public Use
  Company Number: None

PATIENT
  Sex: Male

DRUGS (1)
  1. TACROLIMUS [Suspect]
     Indication: LIVER TRANSPLANT
     Dosage: 4 MG QAM PO; 3 MG QPM PO
     Route: 048
     Dates: start: 20101005, end: 20101228

REACTIONS (6)
  - NAUSEA [None]
  - PAIN [None]
  - HAEMORRHAGE [None]
  - ABDOMINAL DISCOMFORT [None]
  - DIARRHOEA [None]
  - PRODUCT SUBSTITUTION ISSUE [None]
